FAERS Safety Report 4366443-X (Version None)
Quarter: 2004Q2

REPORT INFORMATION
  Report Type: 
  Country: None (occurrence: None)
  Receive Date: 20040527
  Receipt Date: 20040330
  Transmission Date: 20050107
  Serious: No
  Sender: FDA-Public Use
  Company Number: US-BRISTOL-MYERS SQUIBB COMPANY-12546032

PATIENT
  Age: 55 Year
  Sex: Female
  Weight: 74 kg

DRUGS (4)
  1. ERBITUX [Suspect]
     Indication: RECTAL CANCER METASTATIC
     Dosage: CYCLE 1: 712MG IV.
     Route: 042
     Dates: start: 20040301, end: 20040301
  2. BENADRYL [Concomitant]
     Indication: PREMEDICATION
     Route: 042
  3. LEXAPRO [Concomitant]
  4. LORAZEPAM [Concomitant]

REACTIONS (1)
  - DERMATITIS ACNEIFORM [None]
